FAERS Safety Report 9045822 (Version 1)
Quarter: 2013Q1

REPORT INFORMATION
  Report Type: Report from Study
  Country: US (occurrence: US)
  Receive Date: 20130201
  Receipt Date: 20130201
  Transmission Date: 20140127
  Serious: No
  Sender: FDA-Public Use
  Company Number: US-ABBOTT-12P-163-1016758-00

PATIENT
  Age: 66 Year
  Sex: Female

DRUGS (32)
  1. HUMIRA [Suspect]
     Indication: RHEUMATOID ARTHRITIS
     Route: 058
     Dates: start: 201209, end: 201209
  2. OXYCODONE [Concomitant]
     Indication: RHEUMATOID ARTHRITIS
  3. OXYCODONE [Concomitant]
     Indication: FIBROMYALGIA
  4. OXYCODONE [Concomitant]
     Indication: INTERVERTEBRAL DISC PROTRUSION
  5. OXYCODONE [Concomitant]
     Indication: OSTEOARTHRITIS
  6. MS CONTIN [Concomitant]
     Indication: PAIN
     Dosage: (3) 30 MG
  7. PENTASA [Concomitant]
     Indication: CROHN^S DISEASE
     Dosage: 8 PILLS DAILY
  8. SOMA [Concomitant]
     Indication: PRODUCT USED FOR UNKNOWN INDICATION
  9. CYMBALTA [Concomitant]
     Indication: FIBROMYALGIA
     Dosage: DAY
  10. CYMBALTA [Concomitant]
     Dosage: AT NIGHT
  11. SYMBICORT [Concomitant]
     Indication: PRODUCT USED FOR UNKNOWN INDICATION
     Dosage: INHALER
  12. PROAIR [Concomitant]
     Indication: PRODUCT USED FOR UNKNOWN INDICATION
     Dosage: INHALER
  13. UNKNOWN NEBULIZER MEDICATION [Concomitant]
     Indication: PRODUCT USED FOR UNKNOWN INDICATION
  14. PREDNISONE [Concomitant]
     Indication: PRODUCT USED FOR UNKNOWN INDICATION
     Dosage: 5 MG DAILY
  15. NEXIUM [Concomitant]
     Indication: PRODUCT USED FOR UNKNOWN INDICATION
  16. SINGULAIR [Concomitant]
     Indication: PRODUCT USED FOR UNKNOWN INDICATION
  17. VITAMINS [Concomitant]
     Indication: PRODUCT USED FOR UNKNOWN INDICATION
  18. CALTRATE [Concomitant]
     Indication: PRODUCT USED FOR UNKNOWN INDICATION
  19. BLACK COHOSH [Concomitant]
     Indication: PRODUCT USED FOR UNKNOWN INDICATION
  20. PRE-NATAL VITAMIN [Concomitant]
     Indication: PRODUCT USED FOR UNKNOWN INDICATION
  21. UNKNOWN WATER PILL [Concomitant]
     Indication: PRODUCT USED FOR UNKNOWN INDICATION
     Dosage: EVERY OTHER DAY OR SO
  22. VITAMIN E [Concomitant]
     Indication: PRODUCT USED FOR UNKNOWN INDICATION
  23. ENERGY ACTION WITH VITAMINS [Concomitant]
     Indication: PRODUCT USED FOR UNKNOWN INDICATION
  24. MAGNESIUM [Concomitant]
     Indication: PRODUCT USED FOR UNKNOWN INDICATION
  25. POTASSIUM [Concomitant]
     Indication: PRODUCT USED FOR UNKNOWN INDICATION
     Dosage: ABOUT EVERY OTHER DAY
  26. TYLENOL FOR SINUSES [Concomitant]
     Indication: HYPERSENSITIVITY
     Dosage: TWO TO THREE TIMES DAILY
  27. LEVOXYL [Concomitant]
     Indication: HYPOTHYROIDISM
     Dosage: 50 MG DAILY
  28. FOSAMAX [Concomitant]
     Indication: PRODUCT USED FOR UNKNOWN INDICATION
  29. CRESTOR [Concomitant]
     Indication: PRODUCT USED FOR UNKNOWN INDICATION
  30. ROPINIROLE HCL [Concomitant]
     Indication: PRODUCT USED FOR UNKNOWN INDICATION
  31. TRAZODONE [Concomitant]
     Indication: INSOMNIA
     Dosage: AT NIGHT
  32. UNKNOWN MUSCLE RELAXER [Concomitant]
     Indication: FIBROMYALGIA

REACTIONS (6)
  - Diplopia [Not Recovered/Not Resolved]
  - Headache [Not Recovered/Not Resolved]
  - Nausea [Not Recovered/Not Resolved]
  - Crohn^s disease [Unknown]
  - Nausea [Unknown]
  - Fatigue [Recovering/Resolving]
